FAERS Safety Report 10170768 (Version 3)
Quarter: 2014Q4

REPORT INFORMATION
  Report Type: Spontaneous
  Country: TW (occurrence: TW)
  Receive Date: 20140514
  Receipt Date: 20141014
  Transmission Date: 20150528
  Serious: Yes (Hospitalization, Other)
  Sender: FDA-Public Use
  Company Number: TW-JNJFOC-20140504013

PATIENT
  Age: 55 Year
  Sex: Female
  Weight: 61 kg

DRUGS (2)
  1. SIMPONI [Suspect]
     Active Substance: GOLIMUMAB
     Indication: RHEUMATOID ARTHRITIS
     Route: 058
     Dates: start: 20140617, end: 201407
  2. SIMPONI [Suspect]
     Active Substance: GOLIMUMAB
     Indication: RHEUMATOID ARTHRITIS
     Route: 058
     Dates: start: 20131231, end: 201403

REACTIONS (4)
  - Herpes virus infection [Unknown]
  - Urinary tract infection [Recovered/Resolved]
  - Dry gangrene [Unknown]
  - Anaemia macrocytic [Unknown]

NARRATIVE: CASE EVENT DATE: 20140319
